FAERS Safety Report 12442160 (Version 1)
Quarter: 2016Q2

REPORT INFORMATION
  Report Type: Spontaneous
  Country: US (occurrence: US)
  Receive Date: 20160607
  Receipt Date: 20160607
  Transmission Date: 20160815
  Serious: No
  Sender: FDA-Public Use
  Company Number: US-APOTEX-2016AP006425

PATIENT
  Sex: Female

DRUGS (2)
  1. FLUTICASONE [Suspect]
     Active Substance: FLUTICASONE\FLUTICASONE PROPIONATE
     Indication: NASAL CONGESTION
     Route: 065
  2. AUGMENTIN [Concomitant]
     Active Substance: AMOXICILLIN\CLAVULANATE POTASSIUM
     Indication: INFECTION
     Route: 065

REACTIONS (4)
  - Nasal dryness [Not Recovered/Not Resolved]
  - Dysgeusia [Not Recovered/Not Resolved]
  - Hyposmia [Not Recovered/Not Resolved]
  - Sinus disorder [Not Recovered/Not Resolved]
